FAERS Safety Report 16843562 (Version 1)
Quarter: 2019Q3

REPORT INFORMATION
  Report Type: Spontaneous
  Country: AT (occurrence: AT)
  Receive Date: 20190924
  Receipt Date: 20190924
  Transmission Date: 20191005
  Serious: Yes (Other)
  Sender: FDA-Public Use
  Company Number: AT-009507513-1909AUT007776

PATIENT
  Age: 81 Year
  Sex: Female

DRUGS (3)
  1. KEYTRUDA [Suspect]
     Active Substance: PEMBROLIZUMAB
     Indication: HODGKIN^S DISEASE
     Dosage: 200 MILLIGRAM, UNK
     Dates: start: 2019
  2. MEXALEN [Concomitant]
     Active Substance: ACETAMINOPHEN
     Dosage: 1 GRAM, UNK
     Dates: start: 2019
  3. DIBONDRIN [Concomitant]
     Active Substance: DIPHENHYDRAMINE HYDROCHLORIDE
     Dosage: UNK
     Route: 042
     Dates: start: 2019

REACTIONS (5)
  - Atrial fibrillation [Recovered/Resolved]
  - Tachycardia [Recovered/Resolved]
  - Hypertension [Recovered/Resolved]
  - Chills [Recovered/Resolved]
  - Pyrexia [Recovered/Resolved]

NARRATIVE: CASE EVENT DATE: 2019
